FAERS Safety Report 18789693 (Version 2)
Quarter: 2021Q2

REPORT INFORMATION
  Report Type: Spontaneous
  Country: JP (occurrence: JP)
  Receive Date: 20210126
  Receipt Date: 20210610
  Transmission Date: 20210717
  Serious: Yes (Hospitalization)
  Sender: FDA-Public Use
  Company Number: JP-JNJFOC-20210128573

PATIENT
  Age: 37 Year
  Sex: Female
  Weight: 56.6 kg

DRUGS (32)
  1. UPTRAVI [Suspect]
     Active Substance: SELEXIPAG
     Route: 048
     Dates: start: 20191102, end: 20191206
  2. LIMAS [Suspect]
     Active Substance: LITHIUM CARBONATE
     Indication: PRODUCT USED FOR UNKNOWN INDICATION
     Dosage: DOSE UNKNOWN
     Route: 048
     Dates: end: 20200428
  3. LIMAS [Suspect]
     Active Substance: LITHIUM CARBONATE
     Route: 048
     Dates: start: 20200601
  4. LAXOBERON [Concomitant]
     Active Substance: SODIUM PICOSULFATE
  5. BIOFERMIN [Concomitant]
     Active Substance: DIETARY SUPPLEMENT\PROBIOTICS
  6. UPTRAVI [Suspect]
     Active Substance: SELEXIPAG
     Route: 048
     Dates: start: 20191207, end: 20200110
  7. ADEMPAS [Concomitant]
     Active Substance: RIOCIGUAT
     Indication: PULMONARY ARTERIAL HYPERTENSION
     Route: 048
  8. AKINETON [Concomitant]
     Active Substance: BIPERIDEN HYDROCHLORIDE
  9. MAGNESIUM OXIDE. [Concomitant]
     Active Substance: MAGNESIUM OXIDE
     Dates: start: 20200604
  10. SENNOSIDE [SENNOSIDE A+B CALCIUM] [Concomitant]
     Active Substance: SENNOSIDES A AND B
     Dates: end: 20190131
  11. PRIMPERAN [Concomitant]
     Active Substance: METOCLOPRAMIDE HYDROCHLORIDE
     Dates: start: 20190510
  12. FUROSEMIDE. [Concomitant]
     Active Substance: FUROSEMIDE
     Dates: end: 20190628
  13. BELSOMRA [Concomitant]
     Active Substance: SUVOREXANT
  14. BELSOMRA [Concomitant]
     Active Substance: SUVOREXANT
  15. DEPAKENE?R [Concomitant]
     Active Substance: VALPROATE SODIUM
     Dates: start: 20200707
  16. OPSUMIT [Suspect]
     Active Substance: MACITENTAN
     Indication: PULMONARY ARTERIAL HYPERTENSION
     Route: 048
  17. UPTRAVI [Suspect]
     Active Substance: SELEXIPAG
     Route: 048
     Dates: start: 20190817, end: 20191101
  18. FUROSEMIDE. [Concomitant]
     Active Substance: FUROSEMIDE
     Dates: start: 20190629, end: 20201127
  19. QUETIAPINE. [Concomitant]
     Active Substance: QUETIAPINE
  20. BELSOMRA [Concomitant]
     Active Substance: SUVOREXANT
  21. FERROMIA [Concomitant]
     Active Substance: SODIUM FERROUS CITRATE
     Dates: start: 20200925
  22. UPTRAVI [Suspect]
     Active Substance: SELEXIPAG
     Dosage: DOSE UNKNOWN, GRADUALLY INCREASED
     Route: 048
     Dates: start: 20190117, end: 20190315
  23. UPTRAVI [Suspect]
     Active Substance: SELEXIPAG
     Route: 048
     Dates: start: 20200111
  24. DOGMATYL [Concomitant]
     Active Substance: SULPIRIDE
     Dates: start: 20190601
  25. ABILIFY [Concomitant]
     Active Substance: ARIPIPRAZOLE
     Dates: start: 20200507
  26. DIART [Concomitant]
     Active Substance: AZOSEMIDE
     Dates: start: 20201128
  27. BIOFERMIN [Concomitant]
     Active Substance: DIETARY SUPPLEMENT\PROBIOTICS
  28. SILECE [Concomitant]
     Active Substance: FLUNITRAZEPAM
  29. MAGNESIUM OXIDE. [Concomitant]
     Active Substance: MAGNESIUM OXIDE
     Dates: end: 20200603
  30. LAXOBERON [Concomitant]
     Active Substance: SODIUM PICOSULFATE
  31. UPTRAVI [Suspect]
     Active Substance: SELEXIPAG
     Indication: PULMONARY ARTERIAL HYPERTENSION
     Route: 048
     Dates: start: 20190109, end: 20190116
  32. UPTRAVI [Suspect]
     Active Substance: SELEXIPAG
     Route: 048
     Dates: start: 20190316, end: 20190816

REACTIONS (2)
  - Psychotic disorder [Recovered/Resolved]
  - Silent thyroiditis [Recovering/Resolving]

NARRATIVE: CASE EVENT DATE: 20200326
